FAERS Safety Report 8916588 (Version 2)
Quarter: 2024Q3

REPORT INFORMATION
  Report Type: Spontaneous
  Country: FR (occurrence: FR)
  Receive Date: 20121120
  Receipt Date: 20240729
  Transmission Date: 20241017
  Serious: Yes (Death, Other)
  Sender: MERCK
  Company Number: FR-MERCK-1201USA03373

PATIENT
  Age: 65 Year
  Sex: Male
  Weight: 58 kg

DRUGS (8)
  1. EMEND [Interacting]
     Active Substance: APREPITANT
     Indication: Pruritus
     Dosage: 80 MG, QD
     Route: 048
     Dates: start: 201109
  2. TARGRETIN [Interacting]
     Active Substance: BEXAROTENE
     Indication: Cutaneous T-cell lymphoma
     Dosage: 300 MG/M2, QD
     Dates: start: 200911, end: 20111205
  3. ROFERON-A [Suspect]
     Active Substance: INTERFERON ALFA-2A
     Indication: Cutaneous T-cell lymphoma
     Dosage: MIU
     Dates: start: 200911
  4. LEVOTHYROXINE [Concomitant]
     Active Substance: LEVOTHYROXINE\LEVOTHYROXINE SODIUM
     Dosage: 200 ?G, QD
  5. AMITRIPTYLINE HYDROCHLORIDE [Concomitant]
     Active Substance: AMITRIPTYLINE HYDROCHLORIDE
     Dosage: 10 MG, QD
  6. BROMAZEPAM [Concomitant]
     Active Substance: BROMAZEPAM
     Dosage: 3 INTAKES
  7. XERIAL [Concomitant]
     Dosage: 1 DF, QD
  8. UNSPECIFIED INGREDIENT [Concomitant]
     Active Substance: UNSPECIFIED INGREDIENT

REACTIONS (9)
  - Dehydration [Fatal]
  - Drug interaction [Fatal]
  - Off label use [Fatal]
  - Hypernatraemia [Unknown]
  - Acute kidney injury [Unknown]
  - Dysphagia [Unknown]
  - Asthenia [Unknown]
  - Decreased appetite [Unknown]
  - Weight decreased [Unknown]

NARRATIVE: CASE EVENT DATE: 20111205
